FAERS Safety Report 9392653 (Version 2)
Quarter: 2014Q2

REPORT INFORMATION
  Report Type: Report from Study
  Country: BR (occurrence: BR)
  Receive Date: 20130710
  Receipt Date: 20140506
  Transmission Date: 20141212
  Serious: Yes (Other)
  Sender: FDA-Public Use
  Company Number: PHHY2013BR071334

PATIENT
  Sex: Female
  Weight: 68 kg

DRUGS (7)
  1. SANDOSTATIN LAR [Suspect]
     Indication: ACROMEGALY
     Dosage: 20 MG, EVERY 28 DAYS(1 APPLICATION)
     Dates: start: 200601, end: 201307
  2. CABERGOLINE [Suspect]
     Indication: ACROMEGALY
     Dosage: 4 DF, PER WEEK (2 ON MON, 2 ON THU)
     Dates: start: 2008, end: 2011
  3. DIOVAN [Concomitant]
     Indication: HYPERTENSION
     Dosage: 80 MG, DAILY
     Route: 048
     Dates: start: 2007
  4. AMLODIPINE [Concomitant]
     Indication: HYPERTENSION
     Dosage: 10 MG, DAILY
     Route: 048
  5. OMEPRAZOLE [Concomitant]
     Indication: GASTRIC DISORDER
     Dosage: 20 MG, DAILY
     Route: 048
     Dates: start: 2006
  6. SIMVASTATIN [Concomitant]
     Indication: BLOOD CHOLESTEROL ABNORMAL
     Dosage: 40 MG, DAILY
     Route: 048
  7. FOSAMAX D [Concomitant]
     Dosage: 5600 U, WEEKLY
     Route: 048

REACTIONS (10)
  - Thyroid neoplasm [Recovered/Resolved]
  - Body height decreased [Not Recovered/Not Resolved]
  - Carpal tunnel syndrome [Not Recovered/Not Resolved]
  - Blood disorder [Not Recovered/Not Resolved]
  - Platelet count increased [Not Recovered/Not Resolved]
  - Needle issue [Unknown]
  - Hypoaesthesia [Not Recovered/Not Resolved]
  - Hormone level abnormal [Not Recovered/Not Resolved]
  - Peripheral swelling [Not Recovered/Not Resolved]
  - Wrong technique in drug usage process [Unknown]
